FAERS Safety Report 8091959-2 (Version None)
Quarter: 2012Q1

REPORT INFORMATION
  Report Type: 
  Country: None (occurrence: None)
  Receive Date: 20120125
  Receipt Date: 20120120
  Transmission Date: 20120608
  Serious: Yes (Hospitalization, Other)
  Sender: FDA-Public Use
  Company Number: ADR-2011-11779

PATIENT
  Sex: Male

DRUGS (2)
  1. LIORESAL [Suspect]
     Indication: BRAIN INJURY
     Dosage: 1600 MCG/DAY, INTRATH
     Route: 037
  2. LIORESAL [Suspect]
     Indication: MUSCLE SPASTICITY
     Dosage: 1600 MCG/DAY, INTRATH
     Route: 037

REACTIONS (5)
  - DEVICE BATTERY ISSUE [None]
  - DEVICE MALFUNCTION [None]
  - CONVULSION [None]
  - DEVICE INFUSION ISSUE [None]
  - DYSTONIA [None]
